FAERS Safety Report 24148347 (Version 6)
Quarter: 2024Q4

REPORT INFORMATION
  Report Type: Spontaneous
  Country: US (occurrence: US)
  Receive Date: 20240729
  Receipt Date: 20241113
  Transmission Date: 20250115
  Serious: No
  Sender: PFIZER
  Company Number: US-PFIZER INC-PV202400096162

PATIENT
  Age: 61 Year
  Sex: Female
  Weight: 60.317 kg

DRUGS (6)
  1. TUKYSA [Interacting]
     Active Substance: TUCATINIB
     Indication: Breast cancer metastatic
     Dosage: 150 MG TABLET, ONE TABLET A DAY AND 50 MG TABLET, TWO TABLETS A DAY
     Route: 048
     Dates: start: 20240425
  2. TUKYSA [Interacting]
     Active Substance: TUCATINIB
     Dosage: TUKYSA 150MG TABLET AND TUKYSA 50MG TABLET (250MG TWICE DAILY)
  3. TUKYSA [Interacting]
     Active Substance: TUCATINIB
     Dosage: 150MG TAKE 1 TABLET TWICE A DAY, 50MG TAKE 2 TABLETS TWICE A DAY
  4. TUKYSA [Interacting]
     Active Substance: TUCATINIB
     Dosage: 150 MG, ONE TABLET A DAY AND 50 MG, TWO TABLETS A DAY
     Dates: start: 202404
  5. TUKYSA [Interacting]
     Active Substance: TUCATINIB
     Dosage: 150MG, 1 TABLET AND 50MG, 2 TABLETS TWICE DAILY
  6. HYDROCODONE BITARTRATE AND ACETAMINOPHEN [Interacting]
     Active Substance: ACETAMINOPHEN\HYDROCODONE BITARTRATE
     Indication: Pain
     Dosage: UNK

REACTIONS (4)
  - Off label use [Recovering/Resolving]
  - Arthralgia [Not Recovered/Not Resolved]
  - Drug interaction [Unknown]
  - Diarrhoea [Unknown]

NARRATIVE: CASE EVENT DATE: 20240401
